FAERS Safety Report 4688554-1 (Version None)
Quarter: 2005Q2

REPORT INFORMATION
  Report Type: 
  Country: None (occurrence: None)
  Receive Date: 20050609
  Receipt Date: 20050525
  Transmission Date: 20051028
  Serious: Yes (Other)
  Sender: FDA-Public Use
  Company Number: SGBI-2005-00241

PATIENT
  Age: 39 Year
  Sex: Female

DRUGS (3)
  1. ANAGRELIDE HCL [Suspect]
     Indication: ESSENTIAL THROMBOCYTHAEMIA
     Dates: start: 20020101, end: 20041201
  2. ACETYLSALICYLUC ACID (ACETYLSALICYLIC ACID) [Concomitant]
  3. HYDROXYUREA [Concomitant]

REACTIONS (1)
  - AUTOIMMUNE THYROIDITIS [None]
